FAERS Safety Report 6164881-6 (Version None)
Quarter: 2009Q2

REPORT INFORMATION
  Report Type: 
  Country: None (occurrence: None)
  Receive Date: 20090423
  Receipt Date: 20090415
  Transmission Date: 20091009
  Serious: Yes (Hospitalization)
  Sender: FDA-Public Use
  Company Number: US-ASTRAZENECA-2005UW15196

PATIENT
  Age: 68 Year
  Sex: Male
  Weight: 86.2 kg

DRUGS (4)
  1. NEXIUM [Suspect]
     Indication: GASTROOESOPHAGEAL REFLUX DISEASE
     Route: 048
  2. NEXIUM [Suspect]
     Route: 048
  3. ELMIRON [Concomitant]
  4. SYNTHROID [Concomitant]
     Route: 048

REACTIONS (14)
  - ABDOMINAL DISCOMFORT [None]
  - COLITIS [None]
  - CONSTIPATION [None]
  - DIARRHOEA [None]
  - FLATULENCE [None]
  - GASTRITIS [None]
  - GASTROOESOPHAGEAL REFLUX DISEASE [None]
  - GLOSSODYNIA [None]
  - NAUSEA [None]
  - OESOPHAGOGASTRIC FUNDOPLASTY [None]
  - PYREXIA [None]
  - TONGUE DISORDER [None]
  - TONGUE ERUPTION [None]
  - VOMITING [None]
